FAERS Safety Report 18619489 (Version 4)
Quarter: 2021Q1

REPORT INFORMATION
  Report Type: Spontaneous
  Country: US (occurrence: US)
  Receive Date: 20201215
  Receipt Date: 20210301
  Transmission Date: 20210419
  Serious: No
  Sender: FDA-Public Use
  Company Number: US-PFIZER INC-2020488343

PATIENT
  Age: 58 Year
  Sex: Female
  Weight: 95.24 kg

DRUGS (10)
  1. OXYCODONE HYDROCHLORIDE. [Concomitant]
     Active Substance: OXYCODONE HYDROCHLORIDE
     Dosage: 10 MG
  2. OXYCONTIN [Concomitant]
     Active Substance: OXYCODONE HYDROCHLORIDE
     Dosage: 10 MG, 2X/DAY (10 MG TAB ER 12H)
  3. IBRANCE [Suspect]
     Active Substance: PALBOCICLIB
     Indication: BREAST CANCER FEMALE
     Dosage: 125 MG, CYCLIC (1 DAILY FOR 21 DAYS)
     Route: 048
     Dates: start: 20201110
  4. IBRANCE [Suspect]
     Active Substance: PALBOCICLIB
     Dosage: UNK
  5. ATORVASTATIN CALCIUM. [Concomitant]
     Active Substance: ATORVASTATIN CALCIUM
     Dosage: 10 MG
  6. MULTIVITAMINS [ASCORBIC ACID;ERGOCALCIFEROL;FOLIC ACID;NICOTINAMIDE;PA [Concomitant]
     Active Substance: VITAMINS
     Dosage: UNK
  7. AMLODIPINE BESILATE [Concomitant]
     Active Substance: AMLODIPINE BESYLATE
     Dosage: UNK (100% POWDER)
  8. FASLODEX [Concomitant]
     Active Substance: FULVESTRANT
     Dosage: UNK (250 MG/5ML SYRINGE)
  9. LISINOPRIL. [Concomitant]
     Active Substance: LISINOPRIL
     Dosage: UNK (100% POWDER)
  10. METOPROLOL SUCCINATE. [Concomitant]
     Active Substance: METOPROLOL SUCCINATE
     Dosage: UNK

REACTIONS (5)
  - Abdominal distension [Unknown]
  - Sinusitis [Unknown]
  - Nausea [Unknown]
  - Peripheral swelling [Unknown]
  - Extra dose administered [Unknown]

NARRATIVE: CASE EVENT DATE: 2020
